FAERS Safety Report 24839870 (Version 1)
Quarter: 2025Q1

REPORT INFORMATION
  Report Type: Spontaneous
  Country: US (occurrence: None)
  Receive Date: 20250113
  Receipt Date: 20250113
  Transmission Date: 20250409
  Serious: Yes (Other)
  Sender: FDA-CTU
  Company Number: None

PATIENT
  Age: 10 Year
  Sex: Male
  Weight: 36.3 kg

DRUGS (12)
  1. DUPIXENT [Suspect]
     Active Substance: DUPILUMAB
     Indication: Dermatitis atopic
     Route: 058
     Dates: start: 20231115
  2. DUPIXENT [Suspect]
     Active Substance: DUPILUMAB
     Indication: Dermatitis contact
  3. Aerochamber Max [Concomitant]
  4. Albuterol 0.083% 25x3mL [Concomitant]
  5. AQUAPHOR HEALING [Concomitant]
     Active Substance: PETROLATUM
  6. Clobetasol prop 0.05% olnt [Concomitant]
  7. Diphenhydramlne 12.6mg/5mlelix~ [Concomitant]
  8. EPIPEN [Concomitant]
     Active Substance: EPINEPHRINE
  9. Epipen jr 0.15mg [Concomitant]
  10. Flovent HFA 110mcg inhaler [Concomitant]
  11. Fluocinonide 0.05% oint [Concomitant]
  12. HYDROCORTISONE [Concomitant]
     Active Substance: HYDROCORTISONE

REACTIONS (1)
  - Arthralgia [None]

NARRATIVE: CASE EVENT DATE: 20250108
